FAERS Safety Report 10828121 (Version 3)
Quarter: 2015Q2

REPORT INFORMATION
  Report Type: Spontaneous
  Country: IT (occurrence: IT)
  Receive Date: 20150219
  Receipt Date: 20150526
  Transmission Date: 20150821
  Serious: Yes (Hospitalization)
  Sender: FDA-Public Use
  Company Number: IT-RANBAXY-2015RR-93054

PATIENT
  Age: 32 Year
  Sex: Female

DRUGS (1)
  1. PARACETAMOL [Suspect]
     Active Substance: ACETAMINOPHEN
     Indication: ANXIETY
     Dosage: 90 DF TOTAL
     Route: 048
     Dates: start: 20150131, end: 20150131

REACTIONS (3)
  - Drug abuse [Unknown]
  - Suicide attempt [Unknown]
  - Agitation [Unknown]

NARRATIVE: CASE EVENT DATE: 20150131
